FAERS Safety Report 20835305 (Version 1)
Quarter: 2022Q2

REPORT INFORMATION
  Report Type: Spontaneous
  Country: RU (occurrence: RU)
  Receive Date: 20220516
  Receipt Date: 20220516
  Transmission Date: 20220721
  Serious: Yes (Other)
  Sender: FDA-Public Use
  Company Number: RU-BAYER-2021-205041

PATIENT
  Age: 41 Year
  Sex: Female

DRUGS (2)
  1. LEVONORGESTREL [Suspect]
     Active Substance: LEVONORGESTREL
     Indication: Contraception
     Dosage: UNKNOWN
     Route: 015
  2. LEVONORGESTREL [Suspect]
     Active Substance: LEVONORGESTREL
     Indication: Endometrial hyperplasia

REACTIONS (3)
  - Uterine enlargement [Unknown]
  - Amenorrhoea [Unknown]
  - Uterine leiomyoma [Unknown]
